FAERS Safety Report 20689838 (Version 1)
Quarter: 2022Q2

REPORT INFORMATION
  Report Type: Spontaneous
  Country: BE (occurrence: BE)
  Receive Date: 20220408
  Receipt Date: 20220408
  Transmission Date: 20220720
  Serious: Yes (Hospitalization)
  Sender: FDA-Public Use
  Company Number: None

PATIENT
  Age: 53 Year
  Sex: Female

DRUGS (10)
  1. METHOTREXATE [Suspect]
     Active Substance: METHOTREXATE
     Indication: Product used for unknown indication
     Dosage: STOPPED FOR ALMOST A YEAR, NOW RECENTLY STARTED AGAIN
  2. VAXZEVRIA [Suspect]
     Active Substance: AZD-1222
     Indication: COVID-19 immunisation
     Dosage: FIRST DOSE ADMINISTERED
     Dates: start: 20210521
  3. PREDNISOLONE [Concomitant]
     Active Substance: PREDNISOLONE
     Dosage: 7 MILLIGRAM, QD
  4. PREDNISOLONE [Concomitant]
     Active Substance: PREDNISOLONE
     Dosage: 8 MILLIGRAM, QD
  5. TRAMADOL HYDROCHLORIDE [Concomitant]
     Active Substance: TRAMADOL HYDROCHLORIDE
     Dosage: 2 DOSAGE FORM, QD
  6. LIPITOR [Concomitant]
     Active Substance: ATORVASTATIN CALCIUM
     Dosage: 1 DOSAGE FORM, QD
  7. OMEPRAZOLE [Concomitant]
     Active Substance: OMEPRAZOLE
     Dosage: 2 DOSAGE FORM, QD
  8. KEVZARA [Concomitant]
     Active Substance: SARILUMAB
     Dosage: 1 DOSAGE FORM, BIWEEKLY
     Route: 058
  9. FOLIC ACID [Concomitant]
     Active Substance: FOLIC ACID
     Dosage: DAILY AFTER MTX (TEMPORARILY STOPPED AS WELL
  10. LYNESTRENOL [Concomitant]
     Active Substance: LYNESTRENOL
     Dosage: 1 DOSAGE FORM, QD

REACTIONS (7)
  - Pulmonary embolism [Not Recovered/Not Resolved]
  - Painful respiration [Not Recovered/Not Resolved]
  - Pain in extremity [Not Recovered/Not Resolved]
  - Musculoskeletal pain [Not Recovered/Not Resolved]
  - Fatigue [Not Recovered/Not Resolved]
  - Back pain [Not Recovered/Not Resolved]
  - Peripheral embolism [Not Recovered/Not Resolved]

NARRATIVE: CASE EVENT DATE: 20210605
